FAERS Safety Report 24916738 (Version 2)
Quarter: 2025Q3

REPORT INFORMATION
  Report Type: Spontaneous
  Country: EU (occurrence: EU)
  Receive Date: 20250203
  Receipt Date: 20250905
  Transmission Date: 20251021
  Serious: Yes (Other)
  Sender: MYLAN
  Company Number: EU-CHEPLA-2025000902

PATIENT
  Age: 82 Year
  Sex: Female

DRUGS (52)
  1. CLOZAPINE [Suspect]
     Active Substance: CLOZAPINE
     Indication: Product used for unknown indication
  2. CLOZAPINE [Suspect]
     Active Substance: CLOZAPINE
     Route: 065
  3. CLOZAPINE [Suspect]
     Active Substance: CLOZAPINE
     Route: 065
  4. CLOZAPINE [Suspect]
     Active Substance: CLOZAPINE
  5. CITALOPRAM [Suspect]
     Active Substance: CITALOPRAM
     Indication: Product used for unknown indication
  6. CITALOPRAM [Suspect]
     Active Substance: CITALOPRAM
     Route: 065
  7. CITALOPRAM [Suspect]
     Active Substance: CITALOPRAM
     Route: 065
  8. CITALOPRAM [Suspect]
     Active Substance: CITALOPRAM
  9. AMOXICILLIN [Suspect]
     Active Substance: AMOXICILLIN
     Indication: Product used for unknown indication
     Dosage: 1 GRAM, TID
     Dates: start: 20220823, end: 20220830
  10. AMOXICILLIN [Suspect]
     Active Substance: AMOXICILLIN
     Dosage: 1 GRAM, TID
     Route: 065
     Dates: start: 20220823, end: 20220830
  11. AMOXICILLIN [Suspect]
     Active Substance: AMOXICILLIN
     Dosage: 1 GRAM, TID
     Route: 065
     Dates: start: 20220823, end: 20220830
  12. AMOXICILLIN [Suspect]
     Active Substance: AMOXICILLIN
     Dosage: 1 GRAM, TID
     Dates: start: 20220823, end: 20220830
  13. ECONAZOLE [Suspect]
     Active Substance: ECONAZOLE
     Indication: Product used for unknown indication
  14. ECONAZOLE [Suspect]
     Active Substance: ECONAZOLE
     Route: 065
  15. ECONAZOLE [Suspect]
     Active Substance: ECONAZOLE
     Route: 065
  16. ECONAZOLE [Suspect]
     Active Substance: ECONAZOLE
  17. HYDROXYUREA [Suspect]
     Active Substance: HYDROXYUREA
     Indication: Product used for unknown indication
     Dosage: 2 DOSAGE FORM, QD, QD2 DOSAGE FORM, QD (2 DOSAGE FORM TWO TABLETS PER DAY, EVERY 1 DAYS)
     Dates: start: 200507
  18. HYDROXYUREA [Suspect]
     Active Substance: HYDROXYUREA
     Dosage: 2 DOSAGE FORM, QD, QD2 DOSAGE FORM, QD (2 DOSAGE FORM TWO TABLETS PER DAY, EVERY 1 DAYS)
     Dates: start: 200507
  19. HYDROXYUREA [Suspect]
     Active Substance: HYDROXYUREA
     Dosage: 2 DOSAGE FORM, QD, QD2 DOSAGE FORM, QD (2 DOSAGE FORM TWO TABLETS PER DAY, EVERY 1 DAYS)
     Route: 065
     Dates: start: 200507
  20. HYDROXYUREA [Suspect]
     Active Substance: HYDROXYUREA
     Dosage: 2 DOSAGE FORM, QD, QD2 DOSAGE FORM, QD (2 DOSAGE FORM TWO TABLETS PER DAY, EVERY 1 DAYS)
     Route: 065
     Dates: start: 200507
  21. HYDROXYUREA [Suspect]
     Active Substance: HYDROXYUREA
     Dosage: 2 DOSAGE FORM, QD, TWO TABLETS PER DAY
     Dates: start: 20220801
  22. HYDROXYUREA [Suspect]
     Active Substance: HYDROXYUREA
     Dosage: 2 DOSAGE FORM, QD, TWO TABLETS PER DAY
     Dates: start: 20220801
  23. HYDROXYUREA [Suspect]
     Active Substance: HYDROXYUREA
     Dosage: 2 DOSAGE FORM, QD, TWO TABLETS PER DAY
     Route: 065
     Dates: start: 20220801
  24. HYDROXYUREA [Suspect]
     Active Substance: HYDROXYUREA
     Dosage: 2 DOSAGE FORM, QD, TWO TABLETS PER DAY
     Route: 065
     Dates: start: 20220801
  25. KARDEGIC [Suspect]
     Active Substance: ASPIRIN DL-LYSINE
     Indication: Product used for unknown indication
  26. KARDEGIC [Suspect]
     Active Substance: ASPIRIN DL-LYSINE
     Route: 065
  27. KARDEGIC [Suspect]
     Active Substance: ASPIRIN DL-LYSINE
     Route: 065
  28. KARDEGIC [Suspect]
     Active Substance: ASPIRIN DL-LYSINE
  29. ELIQUIS [Suspect]
     Active Substance: APIXABAN
     Indication: Product used for unknown indication
     Dosage: 5 MILLIGRAM, BID, MORNING AND EVENING
  30. ELIQUIS [Suspect]
     Active Substance: APIXABAN
     Dosage: 5 MILLIGRAM, BID, MORNING AND EVENING
     Route: 065
  31. ELIQUIS [Suspect]
     Active Substance: APIXABAN
     Dosage: 5 MILLIGRAM, BID, MORNING AND EVENING
     Route: 065
  32. ELIQUIS [Suspect]
     Active Substance: APIXABAN
     Dosage: 5 MILLIGRAM, BID, MORNING AND EVENING
  33. SINEMET [Suspect]
     Active Substance: CARBIDOPA\LEVODOPA
     Indication: Product used for unknown indication
  34. SINEMET [Suspect]
     Active Substance: CARBIDOPA\LEVODOPA
     Route: 065
  35. SINEMET [Suspect]
     Active Substance: CARBIDOPA\LEVODOPA
     Route: 065
  36. SINEMET [Suspect]
     Active Substance: CARBIDOPA\LEVODOPA
  37. ANAGRELIDE HYDROCHLORIDE [Suspect]
     Active Substance: ANAGRELIDE HYDROCHLORIDE
     Indication: Product used for unknown indication
  38. ANAGRELIDE HYDROCHLORIDE [Suspect]
     Active Substance: ANAGRELIDE HYDROCHLORIDE
     Route: 065
  39. ANAGRELIDE HYDROCHLORIDE [Suspect]
     Active Substance: ANAGRELIDE HYDROCHLORIDE
     Route: 065
  40. ANAGRELIDE HYDROCHLORIDE [Suspect]
     Active Substance: ANAGRELIDE HYDROCHLORIDE
  41. FUROSEMIDE [Suspect]
     Active Substance: FUROSEMIDE
     Indication: Product used for unknown indication
     Dosage: 120 MILLIGRAM, QD
  42. FUROSEMIDE [Suspect]
     Active Substance: FUROSEMIDE
     Dosage: 120 MILLIGRAM, QD
  43. FUROSEMIDE [Suspect]
     Active Substance: FUROSEMIDE
     Dosage: 120 MILLIGRAM, QD
     Route: 065
  44. FUROSEMIDE [Suspect]
     Active Substance: FUROSEMIDE
     Dosage: 120 MILLIGRAM, QD
     Route: 065
  45. FUROSEMIDE [Suspect]
     Active Substance: FUROSEMIDE
     Dosage: 40 MILLIGRAM, QD
  46. FUROSEMIDE [Suspect]
     Active Substance: FUROSEMIDE
     Dosage: 40 MILLIGRAM, QD
  47. FUROSEMIDE [Suspect]
     Active Substance: FUROSEMIDE
     Dosage: 40 MILLIGRAM, QD
     Route: 065
  48. FUROSEMIDE [Suspect]
     Active Substance: FUROSEMIDE
     Dosage: 40 MILLIGRAM, QD
     Route: 065
  49. PEGASYS [Concomitant]
     Active Substance: PEGINTERFERON ALFA-2A
     Dosage: 9 MICROGRAM, QW
  50. PEGASYS [Concomitant]
     Active Substance: PEGINTERFERON ALFA-2A
     Dosage: 9 MICROGRAM, QW
     Route: 065
  51. PEGASYS [Concomitant]
     Active Substance: PEGINTERFERON ALFA-2A
     Dosage: 9 MICROGRAM, QW
     Route: 065
  52. PEGASYS [Concomitant]
     Active Substance: PEGINTERFERON ALFA-2A
     Dosage: 9 MICROGRAM, QW

REACTIONS (8)
  - Parkinson^s disease [Unknown]
  - Pyelonephritis [Unknown]
  - Dementia [Unknown]
  - Renal failure [Unknown]
  - Skin ulcer [Unknown]
  - Angiodermatitis [Unknown]
  - Hypertension [Unknown]
  - COVID-19 [Unknown]

NARRATIVE: CASE EVENT DATE: 20220904
